FAERS Safety Report 10368846 (Version 22)
Quarter: 2019Q4

REPORT INFORMATION
  Report Type: Spontaneous
  Country: US (occurrence: US)
  Receive Date: 20140807
  Receipt Date: 20191002
  Transmission Date: 20200122
  Serious: Yes (Hospitalization, Other)
  Sender: FDA-Public Use
  Company Number: US-PFIZER INC-2014218381

PATIENT
  Age: 86 Year
  Sex: Female
  Weight: 81 kg

DRUGS (5)
  1. LYRICA [Suspect]
     Active Substance: PREGABALIN
     Dosage: 300 MG, DAILY (SIX 50 MG CAPSULES A DAY, 2 CAPSULES BY MOUTH 3 TIMES DAILY)
     Route: 048
  2. LYRICA [Suspect]
     Active Substance: PREGABALIN
     Indication: POST HERPETIC NEURALGIA
     Dosage: 300 MG, DAILY (SIX TIMES A DAY)
     Route: 048
     Dates: start: 1999
  3. LYRICA [Suspect]
     Active Substance: PREGABALIN
     Indication: NEUROPATHY PERIPHERAL
     Dosage: 100 MG, 3X/DAY (2 IN MORNING, 2 IN AFTERNOON AND 2 AT NIGHT)
     Route: 048
  4. LYRICA [Suspect]
     Active Substance: PREGABALIN
     Indication: HERPES ZOSTER
     Dosage: 50 MG, 3X/DAY
     Route: 048
  5. TRAMADOL. [Concomitant]
     Active Substance: TRAMADOL
     Indication: PAIN
     Dosage: UNK

REACTIONS (20)
  - Rib fracture [Unknown]
  - Speech disorder [Unknown]
  - Limb injury [Unknown]
  - Dyspnoea [Unknown]
  - Dysstasia [Unknown]
  - Arthralgia [Unknown]
  - Dependence on oxygen therapy [Unknown]
  - Confusional state [Unknown]
  - Cognitive disorder [Unknown]
  - Fall [Unknown]
  - Lower limb fracture [Unknown]
  - Drug dependence [Unknown]
  - Drug ineffective [Unknown]
  - Weight decreased [Recovered/Resolved]
  - Gait disturbance [Unknown]
  - Multiple fractures [Unknown]
  - Patella fracture [Unknown]
  - Accident [Unknown]
  - Ligament sprain [Unknown]
  - Fatigue [Unknown]

NARRATIVE: CASE EVENT DATE: 201806
